FAERS Safety Report 21081349 (Version 1)
Quarter: 2022Q3

REPORT INFORMATION
  Report Type: Spontaneous
  Country: US (occurrence: US)
  Receive Date: 20220714
  Receipt Date: 20220714
  Transmission Date: 20221026
  Serious: No
  Sender: FDA-Public Use
  Company Number: US-GLENMARK PHARMACEUTICALS-2022GMK072388

PATIENT

DRUGS (2)
  1. MOMETASONE FUROATE [Suspect]
     Active Substance: MOMETASONE FUROATE
     Indication: Neoplasm malignant
     Dosage: UNK; ONCE DAILY ON FACE FOR 10 DAYS THEN TWICE DAILY FOR 14 MORE DAYS
     Route: 061
     Dates: start: 20220429, end: 20220513
  2. FLUOROURACIL [Suspect]
     Active Substance: FLUOROURACIL
     Indication: Neoplasm malignant
     Dosage: UNK UNK, BID
     Route: 061
     Dates: start: 20220429, end: 20220508

REACTIONS (4)
  - Blood blister [Recovered/Resolved]
  - Lip blister [Recovered/Resolved]
  - Product use in unapproved indication [Unknown]
  - Product administered at inappropriate site [Unknown]

NARRATIVE: CASE EVENT DATE: 20220429
